FAERS Safety Report 21252564 (Version 2)
Quarter: 2022Q3

REPORT INFORMATION
  Report Type: Spontaneous
  Country: TW (occurrence: TW)
  Receive Date: 20220825
  Receipt Date: 20220919
  Transmission Date: 20221027
  Serious: Yes (Death, Hospitalization, Other)
  Sender: FDA-Public Use
  Company Number: TW-BRISTOL-MYERS SQUIBB COMPANY-2022-094290

PATIENT
  Age: 57 Year
  Sex: Male
  Weight: 45 kg

DRUGS (7)
  1. OPDIVO [Suspect]
     Active Substance: NIVOLUMAB
     Indication: Oesophageal carcinoma
     Dosage: Q2WK/Q3WK
     Route: 042
     Dates: start: 20220323
  2. OPDIVO [Suspect]
     Active Substance: NIVOLUMAB
     Dosage: Q2WK/Q3WK
     Route: 042
     Dates: start: 20220414
  3. OPDIVO [Suspect]
     Active Substance: NIVOLUMAB
     Dosage: Q2WK/Q3WK
     Route: 042
     Dates: start: 20220503
  4. OPDIVO [Suspect]
     Active Substance: NIVOLUMAB
     Dosage: Q2WK/Q3WK
     Route: 042
     Dates: start: 20220516
  5. OPDIVO [Suspect]
     Active Substance: NIVOLUMAB
     Dosage: Q2WK/Q3WK
     Route: 042
     Dates: start: 20220627
  6. OPDIVO [Suspect]
     Active Substance: NIVOLUMAB
     Dosage: Q2WK/Q3WK
     Route: 042
     Dates: start: 20220721
  7. OPDIVO [Suspect]
     Active Substance: NIVOLUMAB
     Dosage: Q2WK/Q3WK
     Route: 042
     Dates: start: 20220801

REACTIONS (12)
  - Abdominal infection [Fatal]
  - Pneumonia [Fatal]
  - Ileus [Fatal]
  - Acute respiratory failure [Fatal]
  - Sepsis [Fatal]
  - Prescribed overdose [Unknown]
  - Ascites [Unknown]
  - Metastases to lung [Unknown]
  - Metastases to liver [Unknown]
  - Metastases to lymph nodes [Unknown]
  - Sinus tachycardia [Unknown]
  - Malignant neoplasm progression [Unknown]

NARRATIVE: CASE EVENT DATE: 20220711
